FAERS Safety Report 7214326-X (Version None)
Quarter: 2011Q1

REPORT INFORMATION
  Report Type: 
  Country: None (occurrence: None)
  Receive Date: 20110107
  Receipt Date: 20101231
  Transmission Date: 20110831
  Serious: Yes (Death)
  Sender: FDA-Public Use
  Company Number: US-PFIZER INC-2011001766

PATIENT
  Age: 61 Year
  Sex: Male

DRUGS (8)
  1. TEMAZEPAM [Suspect]
  2. RISPERDONE [Suspect]
  3. DOXAZOSIN MESYLATE [Suspect]
  4. LISINOPRIL [Suspect]
  5. BENZONATATE [Suspect]
  6. LORAZEPAM [Suspect]
  7. BENZTROPINE MESYLATE [Suspect]
  8. MIRTAZAPINE [Suspect]

REACTIONS (1)
  - COMPLETED SUICIDE [None]
